FAERS Safety Report 6581297-9 (Version None)
Quarter: 2010Q1

REPORT INFORMATION
  Report Type: 
  Country: None (occurrence: None)
  Receive Date: 20100203
  Receipt Date: 20100118
  Transmission Date: 20100710
  Serious: Yes (Death)
  Sender: FDA-Public Use
  Company Number: APP201000045

PATIENT
  Age: 44 Year
  Sex: Male

DRUGS (7)
  1. METHYLPREDNISOLONE SODIUM SUCCINATE [Suspect]
     Indication: CHRONIC OBSTRUCTIVE PULMONARY DISEASE
     Dosage: 40 MG, 3 IN 1 D,
  2. CEFTRIAXONE [Concomitant]
  3. AZITHROMYCIN [Concomitant]
  4. SALBUTAMOL (SALBUTAMOL) [Concomitant]
  5. IPRATROPIUM BROMIDE [Concomitant]
  6. PREDNISOLONE [Concomitant]
  7. AMOXICILLIN AND CLAVULANATE POTASSIUM [Concomitant]

REACTIONS (9)
  - ESCHERICHIA INFECTION [None]
  - GASTROINTESTINAL SOUNDS ABNORMAL [None]
  - HYPOTENSION [None]
  - KLEBSIELLA INFECTION [None]
  - MULTI-ORGAN FAILURE [None]
  - PSEUDOMONAS INFECTION [None]
  - PULMONARY ALVEOLAR HAEMORRHAGE [None]
  - SPUTUM CULTURE POSITIVE [None]
  - STRONGYLOIDIASIS [None]
